FAERS Safety Report 17693233 (Version 1)
Quarter: 2020Q2

REPORT INFORMATION
  Report Type: Spontaneous
  Country: US (occurrence: US)
  Receive Date: 20200420
  Receipt Date: 20200420
  Transmission Date: 20200714
  Serious: No
  Sender: FDA-Public Use
  Company Number: None

PATIENT
  Age: 48 Year
  Sex: Male

DRUGS (1)
  1. TALTZ [Suspect]
     Active Substance: IXEKIZUMAB
     Indication: PSORIASIS
     Dosage: EVERY 4 WEEKS;?ON HOLD
     Route: 058
     Dates: start: 20190918

REACTIONS (6)
  - Therapy cessation [None]
  - Nasopharyngitis [None]
  - Psoriasis [None]
  - Therapy interrupted [None]
  - Fear of disease [None]
  - Symptom recurrence [None]

NARRATIVE: CASE EVENT DATE: 20200115
